FAERS Safety Report 7378240-1 (Version None)
Quarter: 2011Q1

REPORT INFORMATION
  Report Type: 
  Country: None (occurrence: None)
  Receive Date: 20110328
  Receipt Date: 20110224
  Transmission Date: 20110831
  Serious: Yes (Life-Threatening, Hospitalization)
  Sender: FDA-Public Use
  Company Number: B0703278A

PATIENT
  Sex: Male
  Weight: 70 kg

DRUGS (6)
  1. ARIXTRA [Suspect]
     Indication: DEEP VEIN THROMBOSIS
     Dosage: 7.5MG PER DAY
     Route: 058
     Dates: start: 20110207, end: 20110208
  2. ZOCOR [Concomitant]
     Dosage: 20MG PER DAY
     Route: 048
  3. PREVISCAN [Suspect]
     Indication: DEEP VEIN THROMBOSIS
     Route: 048
     Dates: start: 20110207, end: 20110208
  4. SERESTA [Concomitant]
     Dosage: 10MG THREE TIMES PER DAY
     Route: 048
  5. EFFEXOR [Concomitant]
     Dosage: 37.5MG TWICE PER DAY
     Route: 048
  6. PARACETAMOL [Concomitant]
     Indication: PAIN
     Dosage: 1G THREE TIMES PER DAY
     Route: 048

REACTIONS (4)
  - PULMONARY EMBOLISM [None]
  - CHEST PAIN [None]
  - DYSPNOEA [None]
  - DRUG INEFFECTIVE [None]
